FAERS Safety Report 8549118-2 (Version None)
Quarter: 2012Q3

REPORT INFORMATION
  Report Type: 
  Country: None (occurrence: None)
  Receive Date: 20120730
  Receipt Date: 20120723
  Transmission Date: 20120928
  Serious: No
  Sender: FDA-Public Use
  Company Number: US-PFIZER INC-2012177661

PATIENT
  Sex: Female

DRUGS (1)
  1. DILANTIN [Suspect]
     Dosage: 50 MG, UNK

REACTIONS (2)
  - ABNORMAL BEHAVIOUR [None]
  - DRUG LEVEL INCREASED [None]
